FAERS Safety Report 10895970 (Version 1)
Quarter: 2015Q1

REPORT INFORMATION
  Report Type: Spontaneous
  Country: GB (occurrence: GB)
  Receive Date: 20150308
  Receipt Date: 20150308
  Transmission Date: 20150721
  Serious: Yes (Hospitalization)
  Sender: FDA-Public Use
  Company Number: GB-TEVA-545623ISR

PATIENT

DRUGS (1)
  1. VERAPAMIL [Suspect]
     Active Substance: VERAPAMIL HYDROCHLORIDE
     Indication: POISONING DELIBERATE
     Dosage: 1.68G
     Route: 048

REACTIONS (5)
  - Bradycardia [Unknown]
  - Intentional overdose [Recovering/Resolving]
  - Poisoning deliberate [Recovering/Resolving]
  - Hypotension [Recovered/Resolved]
  - Lactic acidosis [Recovering/Resolving]
